FAERS Safety Report 19390364 (Version 2)
Quarter: 2021Q2

REPORT INFORMATION
  Report Type: Report from Study
  Country: CN (occurrence: CN)
  Receive Date: 20210608
  Receipt Date: 20210609
  Transmission Date: 20210717
  Serious: Yes (Hospitalization, Other)
  Sender: FDA-Public Use
  Company Number: CN-009507513-2106CHN001010

PATIENT
  Age: 56 Year
  Sex: Male
  Weight: 62 kg

DRUGS (7)
  1. PEMETREXED. [Suspect]
     Active Substance: PEMETREXED
     Indication: NON-SMALL CELL LUNG CANCER
     Dosage: 865 MILLIGRAM, CYCLICAL
     Route: 042
     Dates: start: 20210303, end: 20210517
  2. PEMBROLIZUMAB. [Suspect]
     Active Substance: PEMBROLIZUMAB
     Indication: NON-SMALL CELL LUNG CANCER
     Dosage: 200 MILLIGRAM, CYCLICAL
     Route: 042
     Dates: start: 20210303, end: 20210517
  3. CISPLATIN. [Suspect]
     Active Substance: CISPLATIN
     Indication: NON-SMALL CELL LUNG CANCER
     Dosage: 130 MILLIGRAM, CYCLICAL
     Route: 042
     Dates: start: 20210303, end: 20210517
  4. CALCIUM [Concomitant]
     Active Substance: CALCIUM
     Dosage: UNK
     Dates: start: 20210304
  5. CENTRUM VITAMINTS [Concomitant]
     Dosage: UNK
     Dates: start: 20210216
  6. LEUCOGEN [Concomitant]
     Active Substance: LEUCOGEN
     Dosage: UNK
     Dates: start: 20210324
  7. COMPOUND RESERPINE AND TRIAMTERENE [Concomitant]
     Dosage: UNK
     Dates: start: 20210428

REACTIONS (3)
  - Upper gastrointestinal haemorrhage [Not Recovered/Not Resolved]
  - Chronic gastritis [Unknown]
  - Oesophageal disorder [Unknown]

NARRATIVE: CASE EVENT DATE: 20210515
